FAERS Safety Report 10766502 (Version 1)
Quarter: 2015Q1

REPORT INFORMATION
  Report Type: Spontaneous
  Country: US (occurrence: US)
  Receive Date: 20150205
  Receipt Date: 20150205
  Transmission Date: 20150721
  Serious: No
  Sender: FDA-Public Use
  Company Number: US-BAYER-2015-011975

PATIENT
  Sex: Female

DRUGS (8)
  1. CENTRUM [MINERALS NOS,VITAMINS NOS] [Concomitant]
  2. ARMOUR THYROID [Concomitant]
     Active Substance: THYROID, PORCINE\THYROID, UNSPECIFIED
     Dosage: 120 MG, UNK
  3. ASPIRIN LOW DOSE [Concomitant]
     Active Substance: ASPIRIN
     Dosage: 81 MG, UNK
  4. ALFALFA [Concomitant]
     Active Substance: ALFALFA\ALFALFA WHOLE
     Dosage: 250 MG, UNK
  5. ALEVE [Suspect]
     Active Substance: NAPROXEN SODIUM
  6. HYDROCODONE/ACETAMINOPHEN [Concomitant]
     Active Substance: ACETAMINOPHEN\HYDROCODONE
  7. PREDNISOLONE. [Concomitant]
     Active Substance: PREDNISOLONE
     Dosage: 5 MG, UNK
  8. VITAMIN D3 [Concomitant]
     Active Substance: CHOLECALCIFEROL

REACTIONS (1)
  - Drug hypersensitivity [None]
